FAERS Safety Report 4705667-6 (Version None)
Quarter: 2005Q2

REPORT INFORMATION
  Report Type: 
  Country: None (occurrence: None)
  Receive Date: 20050629
  Receipt Date: 20050622
  Transmission Date: 20051028
  Serious: Yes (Other)
  Sender: FDA-Public Use
  Company Number: 2005-06-1013

PATIENT
  Age: 49 Year
  Sex: Male

DRUGS (2)
  1. CELESTONE [Suspect]
     Indication: TINNITUS
     Dosage: 0.5 MG TID ORAL
     Route: 048
     Dates: start: 20050612, end: 20050612
  2. FOSAMAX [Concomitant]

REACTIONS (3)
  - LOCALISED OEDEMA [None]
  - SUFFOCATION FEELING [None]
  - TREATMENT NONCOMPLIANCE [None]
